FAERS Safety Report 8463930-X (Version None)
Quarter: 2012Q2

REPORT INFORMATION
  Report Type: 
  Country: None (occurrence: None)
  Receive Date: 20120625
  Receipt Date: 20120613
  Transmission Date: 20120825
  Serious: Yes (Hospitalization, Other)
  Sender: FDA-Public Use
  Company Number: US-ELI_LILLY_AND_COMPANY-US201006006511

PATIENT
  Sex: Female

DRUGS (13)
  1. FORTEO [Suspect]
     Dosage: 20 UG, QD
     Route: 065
  2. FORTEO [Suspect]
     Dosage: 20 UG, QD
     Route: 065
  3. FORTEO [Suspect]
     Dosage: 20 UG, QD
     Route: 065
  4. FORTEO [Suspect]
     Dosage: 20 UG, QD
     Route: 065
  5. FORTEO [Suspect]
     Dosage: 20 UG, QD
     Route: 065
  6. FORTEO [Suspect]
     Dosage: 20 U, QD
  7. CALCIUM [Concomitant]
  8. FORTEO [Suspect]
     Indication: OSTEOPOROSIS
     Dosage: 20 UG, QD
     Route: 065
     Dates: start: 20100601, end: 20100913
  9. FORTEO [Suspect]
     Dosage: 20 UG, QD
     Route: 065
  10. FORTEO [Suspect]
     Dosage: 20 UG, QD
     Route: 065
  11. FORTEO [Suspect]
     Dosage: 20 UG, QD
     Route: 065
  12. FORTEO [Suspect]
     Dosage: 20 UG, QD
     Route: 065
  13. FORTEO [Suspect]
     Dosage: 20 UG, QD
     Route: 065

REACTIONS (20)
  - GASTROINTESTINAL INFECTION [None]
  - DIZZINESS [None]
  - COLITIS [None]
  - ARTHRALGIA [None]
  - NAUSEA [None]
  - MUSCLE SPASMS [None]
  - RIB FRACTURE [None]
  - INSOMNIA [None]
  - COLD SWEAT [None]
  - PAIN IN EXTREMITY [None]
  - ARTHROPATHY [None]
  - LIMB DEFORMITY [None]
  - JOINT INJURY [None]
  - DIVERTICULITIS [None]
  - LOSS OF CONSCIOUSNESS [None]
  - FALL [None]
  - PRESYNCOPE [None]
  - FATIGUE [None]
  - MEDICATION ERROR [None]
  - FEELING ABNORMAL [None]
